FAERS Safety Report 8887312 (Version 4)
Quarter: 2012Q4

REPORT INFORMATION
  Report Type: 
  Country: JP (occurrence: JP)
  Receive Date: 20121101
  Receipt Date: 20121227
  Transmission Date: 20130627
  Serious: Yes (Other)
  Sender: FDA-Public Use
  Company Number: JP-PFIZER INC-2012272291

PATIENT
  Age: 73 Year
  Sex: Male
  Weight: 56 kg

DRUGS (9)
  1. LYRICA [Suspect]
     Indication: NEURALGIA
     Dosage: 75 mg, daily
     Route: 048
     Dates: start: 20120703
  2. LYRICA [Suspect]
     Indication: PAIN
     Dosage: 50 mg, 1x/day
  3. LYRICA [Suspect]
     Dosage: UNK
  4. TRYPTANOL [Suspect]
     Indication: POST HERPETIC NEURALGIA
     Dosage: 10 mg, 1x/day
     Route: 048
     Dates: start: 20120703, end: 20121106
  5. TRYPTANOL [Suspect]
     Indication: PAIN
  6. NEUROTROPIN [Suspect]
     Indication: POST HERPETIC NEURALGIA
     Dosage: 16 IU, 2x/day
     Route: 048
     Dates: start: 20120703
  7. NEUROTROPIN [Suspect]
     Indication: PAIN
  8. ACETATE ION [Suspect]
     Indication: CHRONIC GASTRITIS
     Dosage: 75 mg, 2x/day
     Route: 048
     Dates: start: 20120703
  9. ACETATE ION [Suspect]
     Indication: POST HERPETIC NEURALGIA

REACTIONS (3)
  - Fall [Recovered/Resolved]
  - Head injury [Unknown]
  - Dizziness [Unknown]
